FAERS Safety Report 6196257-X (Version None)
Quarter: 2009Q2

REPORT INFORMATION
  Report Type: 
  Country: None (occurrence: None)
  Receive Date: 20090520
  Receipt Date: 20070904
  Transmission Date: 20091009
  Serious: Yes (Hospitalization, Other)
  Sender: FDA-Public Use
  Company Number: US-ASTRAZENECA-2006UW22688

PATIENT
  Age: 14790 Day
  Sex: Male
  Weight: 105 kg

DRUGS (27)
  1. SEROQUEL [Suspect]
     Indication: MENTAL DISORDER
     Dosage: 25 MG - 800 MG
     Route: 048
     Dates: start: 20010904
  2. SEROQUEL [Suspect]
     Route: 048
     Dates: end: 20060901
  3. ABILIFY [Concomitant]
     Dosage: 20 MG - 40 MG
     Route: 048
     Dates: start: 20050315
  4. RISPERDAL [Concomitant]
  5. REMERON [Concomitant]
     Dosage: 30 - 45 MG
     Route: 048
  6. LANTUS [Concomitant]
     Indication: DIABETES MELLITUS
  7. NEXIUM [Concomitant]
     Route: 048
  8. GLIPIZIDE [Concomitant]
     Indication: DIABETES MELLITUS
     Dosage: 5 MG - 10 MG
     Route: 048
  9. CRESTOR [Concomitant]
     Route: 048
     Dates: start: 20060703
  10. ZYPREXA [Concomitant]
     Dosage: 5 - 10 MG
     Route: 048
     Dates: end: 20020806
  11. EFFEXOR [Concomitant]
     Indication: DEPRESSION
     Dosage: 75 - 150 MG
     Route: 048
  12. XANAX [Concomitant]
     Route: 048
  13. PAXIL [Concomitant]
     Dosage: 20 - 40 MG
     Route: 048
     Dates: start: 20010911
  14. ALBUTEROL [Concomitant]
  15. REQUIP [Concomitant]
     Indication: PARKINSONISM
     Dosage: 1 - 4 MG
     Route: 048
  16. REQUIP [Concomitant]
     Indication: RESTLESS LEGS SYNDROME
     Dosage: 1 - 4 MG
     Route: 048
  17. SYMMETREL [Concomitant]
     Route: 048
  18. COGENTIN [Concomitant]
     Dosage: 0.5 - 1 MG
     Route: 048
     Dates: end: 20021102
  19. CLONAZEPAM [Concomitant]
     Dosage: 0.5 - 2 MG
     Route: 048
     Dates: start: 20040421
  20. HYDROCODONE BITARTRATE [Concomitant]
     Route: 048
  21. LISINOPRIL [Concomitant]
     Dosage: 5 - 10 MG
     Route: 048
     Dates: start: 20061205
  22. ALPRAZOLAM [Concomitant]
     Dosage: 0.5 - 1 MG
     Route: 048
     Dates: start: 20060808
  23. GEMFIBROZIL [Concomitant]
     Route: 048
     Dates: start: 20070409
  24. WELLBUTRIN [Concomitant]
     Dosage: 100 - 150 MG
     Route: 048
  25. BYETTA [Concomitant]
     Route: 048
  26. METFORMIN HCL [Concomitant]
     Dosage: 500 - 1000 MG
     Route: 048
  27. ADVAIR DISKUS 100/50 [Concomitant]
     Dosage: 100/50
     Route: 055
     Dates: start: 20060727

REACTIONS (26)
  - ADJUSTMENT DISORDER [None]
  - BRONCHITIS [None]
  - CARDIAC FAILURE CONGESTIVE [None]
  - CATARACT [None]
  - CHRONIC OBSTRUCTIVE PULMONARY DISEASE [None]
  - DEAFNESS [None]
  - DIABETES MELLITUS [None]
  - DYSLIPIDAEMIA [None]
  - FATIGUE [None]
  - GASTROENTERITIS [None]
  - HALLUCINATION [None]
  - HEADACHE [None]
  - IRRITABILITY [None]
  - MENTAL DISORDER [None]
  - OBESITY [None]
  - OBSTRUCTIVE AIRWAYS DISORDER [None]
  - PARKINSONISM [None]
  - POLYCYTHAEMIA [None]
  - PSYCHOMOTOR RETARDATION [None]
  - PSYCHOTIC DISORDER [None]
  - PULMONARY HYPERTENSION [None]
  - RESTLESS LEGS SYNDROME [None]
  - SACROILIITIS [None]
  - SLEEP APNOEA SYNDROME [None]
  - SUICIDAL IDEATION [None]
  - TREMOR [None]
